FAERS Safety Report 9168201 (Version 2)
Quarter: 2013Q2

REPORT INFORMATION
  Report Type: Spontaneous
  Country: US (occurrence: None)
  Receive Date: 20130313
  Receipt Date: 20130424
  Transmission Date: 20140414
  Serious: Yes (Death)
  Sender: FDA-Public Use
  Company Number: UTC-029784

PATIENT
  Age: 72 Year
  Sex: Male

DRUGS (11)
  1. TYVASO (6 MICROGRAM, AEROSOL FOR INHALATION) (TREPROSTINIL SODIUM) [Suspect]
     Indication: PULMONARY ARTERIAL HYPERTENSION
     Dosage: (54 MCG, 4 IN 1 D)
     Route: 055
     Dates: start: 20120613
  2. ADCIRCA (TADALAFIL) [Concomitant]
  3. LETAIRIS (AMBRISENTAN) [Concomitant]
  4. TEMAZEPAM [Concomitant]
  5. GLIMEPIRIDE [Concomitant]
  6. FUROSEMIDE [Concomitant]
  7. OMEPRAZOLE [Concomitant]
  8. LISINOPRIL [Concomitant]
  9. OXYBUTYNIN [Concomitant]
  10. FENOFIBRATE [Concomitant]
  11. LEVOTHYROXINE [Concomitant]

REACTIONS (1)
  - Death [None]
